FAERS Safety Report 17120144 (Version 2)
Quarter: 2019Q4

REPORT INFORMATION
  Report Type: Spontaneous
  Country: DE (occurrence: DE)
  Receive Date: 20191206
  Receipt Date: 20191224
  Transmission Date: 20200122
  Serious: Yes (Other)
  Sender: FDA-Public Use
  Company Number: DE-TORRENT-00016100

PATIENT
  Age: 37 Year
  Sex: Female
  Weight: 97 kg

DRUGS (4)
  1. DOXYCYCLINE. [Interacting]
     Active Substance: DOXYCYCLINE
     Indication: BRONCHITIS
     Dosage: 1X 200 MG INGESTION AS ORDERED
     Dates: start: 20191021, end: 20191028
  2. LAMOTRIGIN HEUMANN 100MG TABLETTEN [Suspect]
     Active Substance: LAMOTRIGINE
     Indication: EPILEPSY
     Dosage: 150 MG-0-100 MG
  3. LAMOTRIGIN HEUMANN 50MG TABLETTEN [Interacting]
     Active Substance: LAMOTRIGINE
     Indication: EPILEPSY
     Dosage: 150 MG-0-100 MG
  4. METO HEXAL SUCC 47,5 MG RETARDTABLETTEN [Concomitant]
     Indication: TACHYCARDIA
     Dosage: UNKNOWN

REACTIONS (5)
  - Language disorder [Recovered/Resolved]
  - Epilepsy [Recovered/Resolved]
  - Derealisation [Recovered/Resolved]
  - Epileptic aura [Recovered/Resolved]
  - Drug interaction [Unknown]

NARRATIVE: CASE EVENT DATE: 20191025
